FAERS Safety Report 7218263-6 (Version None)
Quarter: 2011Q1

REPORT INFORMATION
  Report Type: 
  Country: None (occurrence: None)
  Receive Date: 20110110
  Receipt Date: 20110104
  Transmission Date: 20110831
  Serious: Yes (Death, Other)
  Sender: FDA-Public Use
  Company Number: JP-TEVA-256514ISR

PATIENT
  Age: 48 Year
  Sex: Male

DRUGS (3)
  1. METHOTREXATE [Suspect]
     Indication: MALIGNANT NEOPLASM OF RENAL PELVIS
  2. CISPLATIN [Suspect]
  3. BLEOMYCIN SULFATE [Suspect]
     Indication: MALIGNANT NEOPLASM OF RENAL PELVIS

REACTIONS (2)
  - MULTI-ORGAN FAILURE [None]
  - MALAISE [None]
